FAERS Safety Report 12479470 (Version 1)
Quarter: 2016Q2

REPORT INFORMATION
  Report Type: Spontaneous
  Country: US (occurrence: US)
  Receive Date: 20160620
  Receipt Date: 20160620
  Transmission Date: 20160815
  Serious: No
  Sender: FDA-Public Use
  Company Number: US-STRIDES ARCOLAB LIMITED-2016SP002146

PATIENT

DRUGS (3)
  1. PRAMIPEXOLE DIHYDROCHLORIDE. [Suspect]
     Active Substance: PRAMIPEXOLE DIHYDROCHLORIDE
     Indication: PARKINSON^S DISEASE
     Dosage: 2.5 MG, UNK
  2. CLONAZEPAM. [Suspect]
     Active Substance: CLONAZEPAM
     Indication: INSOMNIA
     Dosage: 1 MG, UNK
  3. CLONAZEPAM. [Suspect]
     Active Substance: CLONAZEPAM
     Dosage: 0.5 MG, UNK

REACTIONS (7)
  - Repetitive speech [Recovered/Resolved]
  - Thought blocking [None]
  - Abnormal behaviour [Recovered/Resolved]
  - Memory impairment [Recovered/Resolved]
  - Stereotypy [Recovered/Resolved]
  - Delusion [Recovered/Resolved]
  - Apathy [Recovered/Resolved]
